FAERS Safety Report 7492897-6 (Version None)
Quarter: 2011Q2

REPORT INFORMATION
  Report Type: 
  Country: None (occurrence: None)
  Receive Date: 20110520
  Receipt Date: 20110511
  Transmission Date: 20111010
  Serious: Yes (Death)
  Sender: FDA-Public Use
  Company Number: 2005BI021007

PATIENT
  Age: 49 Year
  Sex: Male

DRUGS (2)
  1. AVONEX [Suspect]
     Route: 030
     Dates: end: 20091201
  2. AVONEX [Suspect]
     Indication: MULTIPLE SCLEROSIS
     Route: 030
     Dates: start: 19960901

REACTIONS (6)
  - REFRACTORY CANCER [None]
  - PROSTATE CANCER METASTATIC [None]
  - NAUSEA [None]
  - WEIGHT INCREASED [None]
  - DIARRHOEA [None]
  - ABDOMINAL PAIN UPPER [None]
